FAERS Safety Report 9219137 (Version 1)
Quarter: 2013Q1

REPORT INFORMATION
  Report Type: Spontaneous
  Country: US (occurrence: US)
  Receive Date: 20120830
  Receipt Date: 20120830
  Transmission Date: 20140127
  Serious: Yes (Other)
  Sender: FDA-Public Use
  Company Number: PHEH2012US007538

PATIENT
  Age: 49 Year
  Sex: Female

DRUGS (1)
  1. SANDOSTATIN LAR DEPOT (OCTREOTIDE W/POLY (D L-LACTIDE-CO-GLYCOLIDE)) SUSPENSION [Suspect]
     Route: 030

REACTIONS (1)
  - Arthritis [None]
